FAERS Safety Report 9820170 (Version 1)
Quarter: 2014Q1

REPORT INFORMATION
  Report Type: Spontaneous
  Country: US (occurrence: None)
  Receive Date: 20140113
  Receipt Date: 20140113
  Transmission Date: 20141002
  Serious: No
  Sender: FDA-Public Use
  Company Number: None

PATIENT
  Age: 28 Year
  Sex: Female

DRUGS (1)
  1. PAROXETINE [Suspect]
     Dosage: TAKEN BY MOUTH
     Route: 048

REACTIONS (1)
  - Marital problem [None]
